FAERS Safety Report 16990638 (Version 1)
Quarter: 2019Q4

REPORT INFORMATION
  Report Type: Spontaneous
  Country: US (occurrence: US)
  Receive Date: 20191104
  Receipt Date: 20191104
  Transmission Date: 20200122
  Serious: Yes (Other)
  Sender: FDA-Public Use
  Company Number: US-PRAGMA PHARMACEUTICALS, LLC-2019PRG00246

PATIENT
  Sex: Female

DRUGS (2)
  1. LATUDA [Suspect]
     Active Substance: LURASIDONE HYDROCHLORIDE
     Route: 048
  2. KEFLEX [Suspect]
     Active Substance: CEPHALEXIN
     Indication: EAR INFECTION
     Dosage: 500 MG, 3X/DAY
     Route: 048
     Dates: start: 201909

REACTIONS (2)
  - Suicidal ideation [Unknown]
  - Drug interaction [Unknown]

NARRATIVE: CASE EVENT DATE: 20191001
